FAERS Safety Report 6743855-8 (Version None)
Quarter: 2010Q2

REPORT INFORMATION
  Report Type: 
  Country: None (occurrence: None)
  Receive Date: 20100527
  Receipt Date: 20100219
  Transmission Date: 20101027
  Serious: No
  Sender: FDA-Public Use
  Company Number: US-KINGPHARMUSA00001-K201000187

PATIENT
  Age: 74 Year
  Sex: Female
  Weight: 52.154 kg

DRUGS (4)
  1. FLECTOR [Suspect]
     Indication: BACK PAIN
     Dosage: 1 PATCH, SINGLE
     Route: 061
     Dates: start: 20100218, end: 20100218
  2. FLECTOR [Suspect]
     Indication: SPINAL FRACTURE
     Dosage: 1 PATCH
     Route: 061
     Dates: start: 20100219
  3. VICODIN [Concomitant]
     Indication: PAIN
     Dosage: 1 DF, QID
     Route: 048
  4. VICODIN [Concomitant]
     Indication: SPINAL FRACTURE

REACTIONS (1)
  - GASTROOESOPHAGEAL REFLUX DISEASE [None]
